FAERS Safety Report 8758651 (Version 1)
Quarter: 2012Q4

REPORT INFORMATION
  Report Type: 
  Country: US (occurrence: US)
  Receive Date: 20120829
  Receipt Date: 20120829
  Transmission Date: 20130627
  Serious: Yes (Hospitalization)
  Sender: FDA-Public Use
  Company Number: US-BAYER-2012-087696

PATIENT
  Age: 16 Year
  Sex: Female
  Weight: 59.59 kg

DRUGS (13)
  1. YAZ [Suspect]
  2. YASMIN [Suspect]
  3. MALARONE [Concomitant]
     Dosage: 250 - 100
  4. VIVOTIF BERNA [Concomitant]
  5. GARDASIL [Concomitant]
  6. METRONIDAZOL [Concomitant]
     Dosage: 70 g, UNK
     Route: 067
  7. ENGERIX-B [Concomitant]
  8. NAPROXEN [Concomitant]
     Dosage: 500 mg, UNK
  9. TEMAZEPAM [Concomitant]
     Indication: SLEEP DISORDER THERAPY
  10. METHERGINE [Concomitant]
     Dosage: 0.2 mg, q 8h
  11. DOXYCYCLINE [Concomitant]
     Dosage: 100 mg, BID
  12. METRONIDAZOLE [Concomitant]
     Dosage: 250 mg, q 12h
  13. PERCOCET [Concomitant]
     Dosage: UNK UNK, PRN

REACTIONS (1)
  - Pulmonary embolism [None]
